FAERS Safety Report 6347944-1 (Version None)
Quarter: 2009Q3

REPORT INFORMATION
  Report Type: 
  Country: None (occurrence: None)
  Receive Date: 20090910
  Receipt Date: 20090903
  Transmission Date: 20100115
  Serious: Yes (Other)
  Sender: FDA-Public Use
  Company Number: PHEH2009US02756

PATIENT
  Sex: Male

DRUGS (12)
  1. STARLIX [Suspect]
     Dosage: 120 MG, TID
  2. STARLIX [Suspect]
     Dosage: UNK, PRN
  3. GLIMEPIRIDE [Concomitant]
     Dosage: 2MG IN AM AND 1MG IN AFTERNOON
  4. LOTENSIN [Concomitant]
     Dosage: 20 MG, QD
  5. TIMOPTIC [Concomitant]
     Dosage: 0.5 %, BID
  6. NORVASC [Concomitant]
     Dosage: 10 MG, QD
  7. CARDURA                                 /IRE/ [Concomitant]
     Dosage: 1 MG, QD
  8. GLIPIZIDE [Concomitant]
     Dosage: 10 MG, QD
  9. POTASSIUM CHLORIDE [Concomitant]
     Dosage: 10 MG, QD
  10. CRESTOR [Concomitant]
     Dosage: 10 MG, QD
  11. IRON [Concomitant]
     Dosage: 325 MG, BID
  12. ASPIRIN [Concomitant]
     Dosage: 81 MG, QD

REACTIONS (1)
  - RETINAL HAEMORRHAGE [None]
